FAERS Safety Report 10833648 (Version 2)
Quarter: 2015Q2

REPORT INFORMATION
  Report Type: Spontaneous
  Country: US (occurrence: US)
  Receive Date: 20150219
  Receipt Date: 20150428
  Transmission Date: 20150821
  Serious: Yes (Hospitalization)
  Sender: FDA-Public Use
  Company Number: US-BAYER-2015-025573

PATIENT
  Age: 20 Year
  Sex: Female
  Weight: 67 kg

DRUGS (1)
  1. MIRENA [Suspect]
     Active Substance: LEVONORGESTREL
     Indication: CONTRACEPTION
     Dosage: 20 MCG/24HR, CONT
     Route: 015
     Dates: start: 20071010, end: 20101206

REACTIONS (8)
  - Injury [None]
  - Device difficult to use [None]
  - Emotional distress [None]
  - Depression [None]
  - Pain [None]
  - Device dislocation [None]
  - Embedded device [None]
  - Device issue [None]

NARRATIVE: CASE EVENT DATE: 201004
